FAERS Safety Report 24863550 (Version 1)
Quarter: 2025Q1

REPORT INFORMATION
  Report Type: Spontaneous
  Country: FR (occurrence: FR)
  Receive Date: 20250120
  Receipt Date: 20250120
  Transmission Date: 20250408
  Serious: Yes (Life-Threatening, Hospitalization, Disabling)
  Sender: BAUSCH AND LOMB
  Company Number: FR-NORGINE LIMITED-NOR202403733

PATIENT
  Age: 65 Year
  Sex: Male

DRUGS (1)
  1. MOVIPREP [Suspect]
     Active Substance: ASCORBIC ACID\POLYETHYLENE GLYCOL 3350\POTASSIUM CHLORIDE\SODIUM ASCORBATE\SODIUM CHLORIDE\SODIUM SU
     Indication: Colonoscopy
     Route: 065
     Dates: start: 20240717, end: 20240717

REACTIONS (6)
  - Septic shock [Not Recovered/Not Resolved]
  - Mediastinitis [Not Recovered/Not Resolved]
  - Bronchopulmonary aspergillosis [Recovered/Resolved with Sequelae]
  - Intensive care unit acquired weakness [Not Recovered/Not Resolved]
  - Oesophageal rupture [Not Recovered/Not Resolved]
  - Urinary tract infection [Recovered/Resolved]

NARRATIVE: CASE EVENT DATE: 20240101
